FAERS Safety Report 13689462 (Version 6)
Quarter: 2018Q1

REPORT INFORMATION
  Report Type: Spontaneous
  Country: JP (occurrence: JP)
  Receive Date: 20170626
  Receipt Date: 20180314
  Transmission Date: 20180508
  Serious: Yes (Death, Hospitalization, Other)
  Sender: FDA-Public Use
  Company Number: JP-009507513-1706JPN002165J

PATIENT
  Age: 51 Year
  Sex: Male
  Weight: 40 kg

DRUGS (5)
  1. MS CONTIN [Concomitant]
     Active Substance: MORPHINE SULFATE
     Indication: NON-SMALL CELL LUNG CANCER STAGE IV
     Dosage: 10 MG, BID
     Route: 048
  2. NAIXAN [Concomitant]
     Active Substance: NAPROXEN SODIUM
     Indication: NON-SMALL CELL LUNG CANCER STAGE IV
     Dosage: 100 MG, TID
     Route: 048
  3. KEYTRUDA [Suspect]
     Active Substance: PEMBROLIZUMAB
     Indication: NON-SMALL CELL LUNG CANCER STAGE IV
     Dosage: 200 MG, Q3W
     Route: 041
     Dates: start: 20170418, end: 20170508
  4. DECADRON [Concomitant]
     Active Substance: DEXAMETHASONE
     Indication: NON-SMALL CELL LUNG CANCER STAGE IV
     Dosage: 1.0 MG, BID
     Route: 048
  5. OPSO [Concomitant]
     Active Substance: MORPHINE HYDROCHLORIDE
     Indication: NON-SMALL CELL LUNG CANCER STAGE IV
     Dosage: 5.0 MG, PRN
     Route: 048

REACTIONS (1)
  - Malignant neoplasm progression [Fatal]

NARRATIVE: CASE EVENT DATE: 20170423
